FAERS Safety Report 23694435 (Version 1)
Quarter: 2024Q2

REPORT INFORMATION
  Report Type: Spontaneous
  Country: US (occurrence: US)
  Receive Date: 20240401
  Receipt Date: 20240401
  Transmission Date: 20240716
  Serious: No
  Sender: FDA-Public Use
  Company Number: US-BAUSCHBL-2024BNL003887

PATIENT
  Sex: Female
  Weight: 47.62 kg

DRUGS (3)
  1. MIEBO [Suspect]
     Active Substance: PERFLUOROHEXYLOCTANE
     Indication: Dry eye
     Dosage: ONCE
     Route: 047
     Dates: start: 20240326, end: 20240327
  2. BUPROPION [Concomitant]
     Active Substance: BUPROPION
     Indication: Product used for unknown indication
  3. ATIVAN [Concomitant]
     Active Substance: LORAZEPAM
     Indication: Product used for unknown indication

REACTIONS (3)
  - Eye irritation [Unknown]
  - Foreign body sensation in eyes [Unknown]
  - Eye pain [Unknown]

NARRATIVE: CASE EVENT DATE: 20240326
